FAERS Safety Report 7226478-6 (Version None)
Quarter: 2010Q4

REPORT INFORMATION
  Report Type: 
  Country: None (occurrence: None)
  Receive Date: 20101126
  Receipt Date: 20101007
  Transmission Date: 20110411
  Serious: No
  Sender: FDA-Public Use
  Company Number: 313315

PATIENT
  Age: 59 Year
  Sex: Female

DRUGS (6)
  1. VICTOZA [Suspect]
     Indication: TYPE 2 DIABETES MELLITUS
     Dosage: 1.2 MG QD, SUBCUTANEOUS
     Route: 058
     Dates: start: 20100601
  2. METFORMIN [Concomitant]
  3. LESCOL [Concomitant]
  4. ASPIRIN [Concomitant]
  5. DIURETIC (HYDROCHLOROTHIAZIDE) [Concomitant]
  6. MULTI-VITAMINS [Concomitant]

REACTIONS (4)
  - INJECTION SITE ERYTHEMA [None]
  - INJECTION SITE PRURITUS [None]
  - INJECTION SITE SWELLING [None]
  - PRURITUS [None]
